FAERS Safety Report 5332813-6 (Version None)
Quarter: 2007Q2

REPORT INFORMATION
  Report Type: 
  Country: None (occurrence: None)
  Receive Date: 20070521
  Receipt Date: 20070514
  Transmission Date: 20071010
  Serious: Yes (Hospitalization)
  Sender: FDA-Public Use
  Company Number: E2020-01235-SPO-SE

PATIENT
  Sex: Female

DRUGS (4)
  1. ARICEPT [Suspect]
     Indication: DEMENTIA ALZHEIMER'S TYPE
     Dosage: 5 MG, 1 IN 1 D, ORAL, 10  MG, 1 IN 1 D, ORAL
     Route: 048
     Dates: end: 20070101
  2. ARICEPT [Suspect]
     Indication: DEMENTIA ALZHEIMER'S TYPE
     Dosage: 5 MG, 1 IN 1 D, ORAL, 10  MG, 1 IN 1 D, ORAL
     Route: 048
     Dates: start: 20070101, end: 20070501
  3. METOPROLOL TARTRATE [Suspect]
  4. INSULIN (INSULIN) [Concomitant]

REACTIONS (4)
  - DRUG INTERACTION [None]
  - HYPOGLYCAEMIA [None]
  - HYPOTHERMIA [None]
  - TREMOR [None]
